FAERS Safety Report 8325599-4 (Version None)
Quarter: 2012Q2

REPORT INFORMATION
  Report Type: 
  Country: None (occurrence: None)
  Receive Date: 20120501
  Receipt Date: 20120418
  Transmission Date: 20120825
  Serious: Yes (Hospitalization, Other)
  Sender: FDA-Public Use
  Company Number: CN-JNJFOC-20110909287

PATIENT
  Sex: Female

DRUGS (4)
  1. PREDNISONE [Concomitant]
     Indication: INTERSTITIAL LUNG DISEASE
     Dosage: 15-25MG
     Route: 048
  2. CYCLOPHOSPHAMIDE [Concomitant]
     Indication: INTERSTITIAL LUNG DISEASE
     Dosage: 200-400MG
     Route: 065
  3. INFLIXIMAB, RECOMBINANT [Suspect]
     Indication: RHEUMATOID ARTHRITIS
     Dosage: INTERVAL WAS REPORTD AS ^28^
     Route: 042
  4. INFLIXIMAB, RECOMBINANT [Suspect]
     Dosage: INTERVAL WAS REPORTD AS ^28^
     Route: 042
     Dates: start: 20111002, end: 20111003

REACTIONS (1)
  - PULMONARY TUBERCULOSIS [None]
